FAERS Safety Report 5154411-X (Version None)
Quarter: 2006Q4

REPORT INFORMATION
  Report Type: 
  Country: None (occurrence: None)
  Receive Date: 20061114
  Receipt Date: 20061031
  Transmission Date: 20070319
  Serious: Yes (Hospitalization)
  Sender: FDA-Public Use
  Company Number: A-CH2006-12542

PATIENT
  Age: 77 Year
  Sex: Male

DRUGS (7)
  1. TRACLEER [Suspect]
     Indication: PULMONARY HYPERTENSION
     Dosage: 125 MG BID ORAL ; 62.5 MG BID ORAL ; 31.25 BID ORAL ; 62.5 MG BID ; 125 MG BID
     Route: 048
     Dates: start: 20060327, end: 20060401
  2. TRACLEER [Suspect]
     Indication: PULMONARY HYPERTENSION
     Dosage: 125 MG BID ORAL ; 62.5 MG BID ORAL ; 31.25 BID ORAL ; 62.5 MG BID ; 125 MG BID
     Route: 048
     Dates: start: 20060401, end: 20060628
  3. TRACLEER [Suspect]
     Indication: PULMONARY HYPERTENSION
     Dosage: 125 MG BID ORAL ; 62.5 MG BID ORAL ; 31.25 BID ORAL ; 62.5 MG BID ; 125 MG BID
     Route: 048
     Dates: start: 20060702, end: 20060706
  4. TRACLEER [Suspect]
     Indication: PULMONARY HYPERTENSION
     Dosage: 125 MG BID ORAL ; 62.5 MG BID ORAL ; 31.25 BID ORAL ; 62.5 MG BID ; 125 MG BID
     Route: 048
     Dates: start: 20060707, end: 20060731
  5. TRACLEER [Suspect]
     Indication: PULMONARY HYPERTENSION
     Dosage: 125 MG BID ORAL ; 62.5 MG BID ORAL ; 31.25 BID ORAL ; 62.5 MG BID ; 125 MG BID
     Route: 048
     Dates: start: 20060801
  6. ACETYLSALICYLIC ACID SRT [Concomitant]
  7. DIURETICS [Concomitant]

REACTIONS (13)
  - ANAEMIA [None]
  - AORTIC ANEURYSM [None]
  - AORTIC THROMBOSIS [None]
  - CHOLELITHIASIS [None]
  - ENTEROCOLITIS INFECTIOUS [None]
  - GASTRITIS EROSIVE [None]
  - GLOSSITIS [None]
  - HAEMORRHAGE [None]
  - HYPERHIDROSIS [None]
  - NEPHROLITHIASIS [None]
  - PARAESTHESIA ORAL [None]
  - RENAL CYST [None]
  - SUPRAVENTRICULAR TACHYCARDIA [None]
